FAERS Safety Report 11328766 (Version 2)
Quarter: 2015Q4

REPORT INFORMATION
  Report Type: Report from Study
  Country: NO (occurrence: NO)
  Receive Date: 20150731
  Receipt Date: 20151009
  Transmission Date: 20160304
  Serious: Yes (Death, Hospitalization)
  Sender: FDA-Public Use
  Company Number: US-ASTRAZENECA-2015SE74056

PATIENT
  Age: 65 Year
  Sex: Male
  Weight: 71 kg

DRUGS (6)
  1. DAXAS [Suspect]
     Active Substance: ROFLUMILAST
     Indication: CHRONIC OBSTRUCTIVE PULMONARY DISEASE
     Route: 048
     Dates: start: 20140113, end: 20150120
  2. SYMBICORT [Concomitant]
     Active Substance: BUDESONIDE\FORMOTEROL FUMARATE DIHYDRATE
     Dates: end: 201501
  3. ATROVENT [Concomitant]
     Active Substance: IPRATROPIUM BROMIDE
     Dates: end: 201501
  4. SHORT-ACTING ANTICHOLINERGIC (SAMA) [Concomitant]
  5. SHORT-ACTING BETA2 AGONIST (SABA) [Concomitant]
  6. VENTOLINE [Concomitant]
     Active Substance: ALBUTEROL
     Dates: end: 201501

REACTIONS (1)
  - Chronic obstructive pulmonary disease [Fatal]

NARRATIVE: CASE EVENT DATE: 20140115
